FAERS Safety Report 5621558-0 (Version None)
Quarter: 2008Q1

REPORT INFORMATION
  Report Type: 
  Country: None (occurrence: None)
  Receive Date: 20080206
  Receipt Date: 20080122
  Transmission Date: 20080703
  Serious: Yes (Other)
  Sender: FDA-Public Use
  Company Number: 8029343

PATIENT
  Age: 19 Year
  Sex: Female

DRUGS (3)
  1. TUSSIONEX [Suspect]
     Indication: COUGH
     Dosage: 5 ML /D PO
     Route: 048
     Dates: start: 20080116, end: 20080116
  2. ADVAIR DISKUS 100/50 [Concomitant]
  3. CLINDAMYCIN HCL [Concomitant]

REACTIONS (3)
  - OEDEMA PERIPHERAL [None]
  - RASH GENERALISED [None]
  - URTICARIA [None]
